FAERS Safety Report 6173894-X (Version None)
Quarter: 2009Q2

REPORT INFORMATION
  Report Type: 
  Country: None (occurrence: None)
  Receive Date: 20090429
  Receipt Date: 20090429
  Transmission Date: 20091009
  Serious: Yes (Hospitalization, Disabling, Other)
  Sender: FDA-Public Use
  Company Number: None

PATIENT
  Age: 89 Year
  Sex: Female
  Weight: 90 kg

DRUGS (2)
  1. DIGOXIN [Suspect]
     Indication: HEART RATE INCREASED
     Dosage: 0.25 Q6H IV BOLUS
     Route: 040
     Dates: start: 20090425, end: 20090428
  2. DIGOXIN [Suspect]
     Dosage: 0.25 DAILY PO
     Route: 048

REACTIONS (2)
  - BLOOD PRESSURE DECREASED [None]
  - UNEVALUABLE EVENT [None]
